FAERS Safety Report 15996094 (Version 1)
Quarter: 2019Q1

REPORT INFORMATION
  Report Type: Report from Study
  Country: US (occurrence: US)
  Receive Date: 20190222
  Receipt Date: 20190222
  Transmission Date: 20190418
  Serious: Yes (Other)
  Sender: FDA-Public Use
  Company Number: US-SA-2019SA049302

PATIENT
  Age: 59 Year
  Sex: Male

DRUGS (1)
  1. INSULIN GLARGINE [Suspect]
     Active Substance: INSULIN GLARGINE
     Indication: TYPE 2 DIABETES MELLITUS
     Dosage: 40 U, UNK
     Route: 065
     Dates: start: 20190212

REACTIONS (8)
  - Haemorrhage [Unknown]
  - Depression [Unknown]
  - Fall [Unknown]
  - Blood glucose increased [Unknown]
  - Swelling [Unknown]
  - Stress [Unknown]
  - Injury [Unknown]
  - Pain [Unknown]
